FAERS Safety Report 10059648 (Version 1)
Quarter: 2014Q2

REPORT INFORMATION
  Report Type: Spontaneous
  Country: US (occurrence: US)
  Receive Date: 20140404
  Receipt Date: 20140404
  Transmission Date: 20141212
  Serious: No
  Sender: FDA-Public Use
  Company Number: US-GLAXOSMITHKLINE-A1035200A

PATIENT
  Age: 52 Year
  Sex: Male

DRUGS (1)
  1. ALLI [Suspect]
     Indication: WEIGHT DECREASED
     Dates: start: 20130722

REACTIONS (4)
  - Rectal discharge [Not Recovered/Not Resolved]
  - Steatorrhoea [Not Recovered/Not Resolved]
  - Diarrhoea [Not Recovered/Not Resolved]
  - Treatment noncompliance [Unknown]
